FAERS Safety Report 5818393-7 (Version None)
Quarter: 2008Q3

REPORT INFORMATION
  Report Type: 
  Country: None (occurrence: None)
  Receive Date: 20080722
  Receipt Date: 20080718
  Transmission Date: 20090109
  Serious: Yes (Hospitalization)
  Sender: FDA-Public Use
  Company Number: NO-PFIZER INC-2008060117

PATIENT
  Sex: Male

DRUGS (2)
  1. LIPITOR [Suspect]
     Route: 048
     Dates: start: 20080601, end: 20080630
  2. CARDURAN CR [Concomitant]
     Route: 048

REACTIONS (2)
  - HEPATIC ENZYME ABNORMAL [None]
  - RASH MACULO-PAPULAR [None]
